FAERS Safety Report 8582553-5 (Version None)
Quarter: 2012Q3

REPORT INFORMATION
  Report Type: 
  Country: None (occurrence: None)
  Receive Date: 20120727
  Receipt Date: 20120718
  Transmission Date: 20120928
  Serious: Yes (Hospitalization, Other)
  Sender: FDA-Public Use
  Company Number: DKLU1083213

PATIENT
  Age: 4 Year
  Sex: Male

DRUGS (1)
  1. SABRIL [Suspect]
     Indication: INFANTILE SPASMS
     Dosage: 500 MG MILLIGRAM(S), 3 IN 1 D
     Dates: start: 20091112

REACTIONS (6)
  - RESPIRATORY DISORDER [None]
  - OXYGEN SATURATION DECREASED [None]
  - CYANOSIS [None]
  - PYREXIA [None]
  - DYSPNOEA [None]
  - WEIGHT DECREASED [None]
